FAERS Safety Report 9712289 (Version 1)
Quarter: 2013Q4

REPORT INFORMATION
  Report Type: Spontaneous
  Country: US (occurrence: US)
  Receive Date: 20131126
  Receipt Date: 20131126
  Transmission Date: 20140711
  Serious: Yes (Hospitalization)
  Sender: FDA-Public Use
  Company Number: US-BRISTOL-MYERS SQUIBB COMPANY-18857821

PATIENT
  Age: 6 Decade
  Sex: Female

DRUGS (2)
  1. BYDUREON [Suspect]
  2. SULFONYLUREA [Suspect]

REACTIONS (2)
  - Hypoglycaemia [Unknown]
  - Injury [Unknown]
